FAERS Safety Report 26000421 (Version 1)
Quarter: 2025Q4

REPORT INFORMATION
  Report Type: Spontaneous
  Country: US (occurrence: US)
  Receive Date: 20251105
  Receipt Date: 20251105
  Transmission Date: 20260117
  Serious: No
  Sender: ANI
  Company Number: US-ANIPHARMA-2025-US-038178

PATIENT
  Age: 79 Year
  Sex: Male

DRUGS (8)
  1. AMIODARONE HYDROCHLORIDE [Concomitant]
     Active Substance: AMIODARONE HYDROCHLORIDE
  2. CARVEDILOL [Concomitant]
     Active Substance: CARVEDILOL
  3. NITROSTAT [Concomitant]
     Active Substance: NITROGLYCERIN
  4. EFFER-K [Concomitant]
  5. XARELTO [Concomitant]
     Active Substance: RIVAROXABAN
  6. ROSUVASTATIN CALCIUM [Concomitant]
     Active Substance: ROSUVASTATIN CALCIUM
  7. ASPIRIN [Concomitant]
     Active Substance: ASPIRIN
  8. CORTICOTROPIN [Suspect]
     Active Substance: CORTICOTROPIN
     Indication: Nephrotic syndrome
     Dosage: 80 UNITS
     Route: 058

REACTIONS (3)
  - Injection site bruising [Not Recovered/Not Resolved]
  - Contraindicated product administered [Not Recovered/Not Resolved]
  - Condition aggravated [Not Recovered/Not Resolved]
